FAERS Safety Report 23754230 (Version 14)
Quarter: 2025Q2

REPORT INFORMATION
  Report Type: Report from Study
  Country: DE (occurrence: DE)
  Receive Date: 20240417
  Receipt Date: 20250619
  Transmission Date: 20250716
  Serious: Yes (Other)
  Sender: JOHNSON AND JOHNSON
  Company Number: DE-JNJFOC-20240222351

PATIENT
  Age: 56 Year
  Sex: Female

DRUGS (8)
  1. ESKETAMINE [Suspect]
     Active Substance: ESKETAMINE
     Indication: Depression
     Route: 045
     Dates: start: 20240201, end: 20240201
  2. ESKETAMINE [Suspect]
     Active Substance: ESKETAMINE
     Route: 045
     Dates: start: 20240205
  3. ESKETAMINE [Suspect]
     Active Substance: ESKETAMINE
     Route: 045
     Dates: start: 20240328, end: 20240402
  4. ESKETAMINE [Suspect]
     Active Substance: ESKETAMINE
     Route: 045
     Dates: start: 20240408, end: 20240422
  5. ESKETAMINE [Suspect]
     Active Substance: ESKETAMINE
     Route: 045
     Dates: start: 20240429, end: 20240521
  6. ESKETAMINE [Suspect]
     Active Substance: ESKETAMINE
     Route: 045
     Dates: start: 20240604, end: 20240604
  7. ESKETAMINE [Suspect]
     Active Substance: ESKETAMINE
     Route: 045
     Dates: start: 20240618, end: 20240618
  8. ESKETAMINE [Suspect]
     Active Substance: ESKETAMINE
     Route: 045
     Dates: start: 20240701, end: 20240701

REACTIONS (9)
  - Hallucination, auditory [Recovered/Resolved]
  - Dizziness [Recovered/Resolved]
  - Taste disorder [Recovered/Resolved]
  - Hypoaesthesia oral [Recovered/Resolved]
  - Visual impairment [Recovered/Resolved]
  - Diplopia [Recovered/Resolved]
  - Vertigo [Recovered/Resolved]
  - Oxygen saturation decreased [Recovered/Resolved]
  - Feeling cold [Recovered/Resolved]

NARRATIVE: CASE EVENT DATE: 20240201
